FAERS Safety Report 20085434 (Version 1)
Quarter: 2021Q4

REPORT INFORMATION
  Report Type: Spontaneous
  Country: US (occurrence: None)
  Receive Date: 20211117
  Receipt Date: 20211117
  Transmission Date: 20220303
  Serious: No
  Sender: FDA-Public Use
  Company Number: None

PATIENT
  Age: 25 Year
  Sex: Female
  Weight: 69.75 kg

DRUGS (1)
  1. BAMLANIVIMAB\ETESEVIMAB [Suspect]
     Active Substance: BAMLANIVIMAB\ETESEVIMAB
     Indication: COVID-19
     Route: 041
     Dates: start: 20211116, end: 20211116

REACTIONS (5)
  - Chest pain [None]
  - Heart rate increased [None]
  - Dyspnoea [None]
  - Infusion related reaction [None]
  - Exposure during pregnancy [None]

NARRATIVE: CASE EVENT DATE: 20211116
